FAERS Safety Report 9637538 (Version 1)
Quarter: 2013Q4

REPORT INFORMATION
  Report Type: Report from Study
  Country: CA (occurrence: CA)
  Receive Date: 20131022
  Receipt Date: 20131022
  Transmission Date: 20140711
  Serious: Yes (Other)
  Sender: FDA-Public Use
  Company Number: CA-JNJFOC-20131009993

PATIENT
  Age: 55 Year
  Sex: Male
  Weight: 90 kg

DRUGS (6)
  1. REMICADE [Suspect]
     Indication: PSORIATIC ARTHROPATHY
     Route: 042
     Dates: start: 20130430
  2. DOVOBET [Concomitant]
     Route: 065
  3. TYLENOL 3 [Concomitant]
     Route: 065
  4. NAPROXEN [Concomitant]
     Route: 065
  5. SALAZOPYRINE [Concomitant]
     Route: 065
  6. PRISTIQ [Concomitant]
     Route: 065

REACTIONS (2)
  - Thrombosis [Not Recovered/Not Resolved]
  - Contusion [Not Recovered/Not Resolved]
